FAERS Safety Report 26107425 (Version 2)
Quarter: 2025Q4

REPORT INFORMATION
  Report Type: Report from Study
  Country: CN (occurrence: CN)
  Receive Date: 20251201
  Receipt Date: 20251216
  Transmission Date: 20260117
  Serious: No
  Sender: ALEXION PHARMACEUTICALS
  Company Number: CN-AstraZeneca-CH-00999856A

PATIENT
  Age: 10 Year
  Sex: Male
  Weight: 33.5 kg

DRUGS (1)
  1. KOSELUGO [Suspect]
     Active Substance: SELUMETINIB
     Indication: Neurofibromatosis
     Dosage: 30 MILLIGRAM, BID
     Route: 061
     Dates: start: 202203

REACTIONS (4)
  - Paronychia [Not Recovered/Not Resolved]
  - Rash [Unknown]
  - Drug ineffective [Unknown]
  - Neoplasm progression [Not Recovered/Not Resolved]
